FAERS Safety Report 5471278-0 (Version None)
Quarter: 2007Q3

REPORT INFORMATION
  Report Type: 
  Country: None (occurrence: None)
  Receive Date: 20070928
  Receipt Date: 20070918
  Transmission Date: 20080115
  Serious: Yes (Hospitalization)
  Sender: FDA-Public Use
  Company Number: AR-PFIZER INC-2007078038

PATIENT
  Age: 84 Year
  Sex: Male

DRUGS (2)
  1. ZITHROMAX [Suspect]
     Indication: BRONCHITIS
     Route: 048
  2. QUINOLONE ANTIBACTERIALS [Suspect]

REACTIONS (1)
  - TENDON OPERATION [None]
